FAERS Safety Report 5147884-X (Version None)
Quarter: 2006Q4

REPORT INFORMATION
  Report Type: 
  Country: None (occurrence: None)
  Receive Date: 20061106
  Receipt Date: 20061011
  Transmission Date: 20070319
  Serious: Yes (Hospitalization, Other)
  Sender: FDA-Public Use
  Company Number: 2006SP004207

PATIENT
  Age: 36 Year
  Sex: Male

DRUGS (2)
  1. PEG-INTRON (PEGINTERFERON ALFA-2B) (150 MCG) [Suspect]
     Indication: HEPATITIS C
     Dosage: 150 MCG; UNKNOWN
     Dates: start: 20060817, end: 20060928
  2. REBETOL [Suspect]
     Indication: HEPATITIS C
     Dosage: 1200 MG; UNKNOWN; PO
     Route: 048
     Dates: start: 20060817, end: 20060928

REACTIONS (4)
  - ABDOMINAL PAIN [None]
  - DIVERTICULITIS [None]
  - IMMUNE SYSTEM DISORDER [None]
  - INTESTINAL CYST [None]
